FAERS Safety Report 18048490 (Version 4)
Quarter: 2021Q1

REPORT INFORMATION
  Report Type: Report from Study
  Country: RO (occurrence: RO)
  Receive Date: 20200721
  Receipt Date: 20210124
  Transmission Date: 20210419
  Serious: Yes (Other)
  Sender: FDA-Public Use
  Company Number: PHHY2017RO105327

PATIENT
  Age: 13 Year
  Sex: Male

DRUGS (2)
  1. GLIVEC [Suspect]
     Active Substance: IMATINIB MESYLATE
     Indication: ACUTE LYMPHOCYTIC LEUKAEMIA
     Dosage: 210 OT, UNKNOWN
     Route: 048
     Dates: start: 20170110
  2. GLIVEC [Suspect]
     Active Substance: IMATINIB MESYLATE
     Dosage: 340 OT, UNKNOWN
     Route: 048

REACTIONS (25)
  - Neutropenia [Unknown]
  - Hypertriglyceridaemia [Unknown]
  - Nasopharyngitis [Unknown]
  - Neurological symptom [Recovered/Resolved]
  - Meningitis [Recovered/Resolved]
  - Escherichia sepsis [Unknown]
  - Intracranial pressure increased [Recovered/Resolved]
  - Asymptomatic bacteriuria [Unknown]
  - Headache [Unknown]
  - Meningitis [Recovered/Resolved]
  - Hypokalaemia [Recovered/Resolved]
  - Hydrocephalus [Recovered/Resolved]
  - Alanine aminotransferase increased [Unknown]
  - Aspartate aminotransferase increased [Unknown]
  - Pleural effusion [Unknown]
  - Diarrhoea [Unknown]
  - Blood fibrinogen decreased [Unknown]
  - Quadriplegia [Unknown]
  - VIth nerve paralysis [Unknown]
  - Hyponatraemia [Unknown]
  - Allergic reaction to excipient [Unknown]
  - Febrile neutropenia [Recovered/Resolved]
  - Thrombocytopenia [Unknown]
  - IIIrd nerve paralysis [Unknown]
  - Anaemia [Unknown]

NARRATIVE: CASE EVENT DATE: 20170126
